FAERS Safety Report 9177950 (Version 2)
Quarter: 2012Q4

REPORT INFORMATION
  Report Type: Report from Study
  Country: CH (occurrence: FR)
  Receive Date: 20121016
  Receipt Date: 20121024
  Transmission Date: 20130627
  Serious: Yes (Hospitalization)
  Sender: FDA-Public Use
  Company Number: FR-BIOMARINP-003118

PATIENT
  Age: 22 None
  Sex: Male
  Weight: 62 kg

DRUGS (3)
  1. KUVAN [Suspect]
     Indication: PHENYLKETONURIA
     Dates: start: 20090910
  2. LEVOTONINE [Suspect]
     Dates: start: 19900228
  3. LEVOTONINE [Suspect]
     Indication: PRODUCT USED FOR UNKNOWN INDICATION
     Dates: start: 20120528

REACTIONS (4)
  - Grand mal convulsion [Recovered/Resolved]
  - Head injury [Recovered/Resolved]
  - Skin injury [Recovered/Resolved]
  - Fall [None]
